FAERS Safety Report 15821066 (Version 16)
Quarter: 2021Q2

REPORT INFORMATION
  Report Type: Report from Study
  Country: DE (occurrence: DE)
  Receive Date: 20190114
  Receipt Date: 20210422
  Transmission Date: 20210716
  Serious: Yes (Hospitalization)
  Sender: FDA-Public Use
  Company Number: DE-B.I. PHARMACEUTICALS,INC./RIDGEFIELD-2019-BI-000731

PATIENT
  Age: 65 Year
  Sex: Female
  Weight: 55 kg

DRUGS (9)
  1. IMODIUM [Concomitant]
     Active Substance: LOPERAMIDE HYDROCHLORIDE
     Indication: DIARRHOEA
     Route: 048
     Dates: start: 20180907
  2. NIVOLUMAB [Suspect]
     Active Substance: NIVOLUMAB
     Indication: NON-SMALL CELL LUNG CANCER
     Dosage: STRENGTH: 10 MG/ML; DOSE BEFORE ONSET OF SAE: 240MG
     Route: 042
     Dates: start: 20180906, end: 20181227
  3. NIVOLUMAB [Suspect]
     Active Substance: NIVOLUMAB
     Route: 042
     Dates: start: 20190328
  4. L?THYROXIN [LEVOTHYROXINE] [Concomitant]
     Active Substance: LEVOTHYROXINE SODIUM
     Indication: PROPHYLAXIS
     Route: 048
     Dates: start: 20180905
  5. L?THYROXIN [LEVOTHYROXINE] [Concomitant]
     Active Substance: LEVOTHYROXINE SODIUM
     Indication: HYPOTHYROIDISM
  6. NINTEDANIB [Suspect]
     Active Substance: NINTEDANIB
     Indication: NON-SMALL CELL LUNG CANCER
     Dosage: DOSE BEFORE ONSET OF EVENT: 200MG IN THE MORNING (400MG/DAY)
     Route: 048
     Dates: start: 20180906, end: 20190111
  7. KEPPRA [Concomitant]
     Active Substance: LEVETIRACETAM
     Indication: SEIZURE PROPHYLAXIS
     Route: 048
     Dates: start: 20180905
  8. FRESUBIN [Concomitant]
     Active Substance: AMINO ACIDS\DEXTROSE\ELECTROLYTES NOS\SOYBEAN OIL\VITAMINS
     Indication: WEIGHT DECREASED
     Route: 048
     Dates: start: 20181227
  9. NIVOLUMAB [Suspect]
     Active Substance: NIVOLUMAB
     Route: 042
     Dates: start: 20190228, end: 20190228

REACTIONS (3)
  - Wound infection pseudomonas [Recovered/Resolved]
  - Impaired healing [Recovered/Resolved with Sequelae]
  - Impaired healing [Recovered/Resolved]

NARRATIVE: CASE EVENT DATE: 20181231
